FAERS Safety Report 4278899-1 (Version None)
Quarter: 2004Q1

REPORT INFORMATION
  Report Type: 
  Country: None (occurrence: None)
  Receive Date: 20040122
  Receipt Date: 20040112
  Transmission Date: 20041129
  Serious: Yes (Death)
  Sender: FDA-Public Use
  Company Number: US-JNJFOC-20031002469

PATIENT
  Age: 47 Year
  Sex: Male
  Weight: 60 kg

DRUGS (4)
  1. REMICADE [Suspect]
     Indication: CROHN'S DISEASE
     Dosage: 400 MG, INTRAVENOUS
     Route: 042
     Dates: start: 20030626
  2. AZULFIDINE [Concomitant]
  3. PREDNISONE [Concomitant]
  4. OMEPRAZOLE [Concomitant]

REACTIONS (12)
  - ACIDOSIS [None]
  - ASPIRATION [None]
  - AZOTAEMIA [None]
  - CANDIDA SEPSIS [None]
  - DEEP VEIN THROMBOSIS [None]
  - DEHYDRATION [None]
  - GASTROINTESTINAL DISORDER [None]
  - ILIAC VEIN THROMBOSIS [None]
  - LUNG INFILTRATION [None]
  - PNEUMONIA [None]
  - POISONING [None]
  - RENAL FAILURE [None]
